FAERS Safety Report 6537872-0 (Version None)
Quarter: 2010Q1

REPORT INFORMATION
  Report Type: 
  Country: None (occurrence: None)
  Receive Date: 20100114
  Receipt Date: 20100107
  Transmission Date: 20100710
  Serious: Yes (Other)
  Sender: FDA-Public Use
  Company Number: US-AMGEN-QUU382192

PATIENT
  Sex: Female
  Weight: 15.1 kg

DRUGS (4)
  1. ENBREL [Suspect]
     Indication: JUVENILE ARTHRITIS
     Route: 058
     Dates: start: 20090505, end: 20091210
  2. FOLIC ACID [Concomitant]
     Dates: start: 20081217
  3. NAPROSYN [Concomitant]
     Dates: start: 20081105
  4. METHOTREXATE [Concomitant]
     Dates: start: 20081217

REACTIONS (1)
  - UVEITIS [None]
